FAERS Safety Report 7600873-5 (Version None)
Quarter: 2011Q3

REPORT INFORMATION
  Report Type: 
  Country: None (occurrence: None)
  Receive Date: 20110711
  Receipt Date: 20110701
  Transmission Date: 20111222
  Serious: Yes (Hospitalization)
  Sender: FDA-Public Use
  Company Number: US-ELI_LILLY_AND_COMPANY-US201107000213

PATIENT
  Sex: Female
  Weight: 126.98 kg

DRUGS (14)
  1. OGEN [Concomitant]
     Dosage: UNK
  2. METOPROLOL TARTRATE [Concomitant]
     Dosage: UNK
  3. KLONOPIN [Concomitant]
     Dosage: UNK
  4. BYETTA [Suspect]
     Dosage: 5 UG, TID
     Dates: start: 20110602
  5. FLUOXETINE [Concomitant]
     Dosage: UNK
  6. BYETTA [Suspect]
     Indication: TYPE 2 DIABETES MELLITUS
     Dosage: 5 UG, TID
     Route: 058
     Dates: start: 20090101
  7. WELLBUTRIN [Concomitant]
     Dosage: UNK
  8. LEVOTHYROXINE SODIUM [Concomitant]
     Dosage: UNK
  9. WELCHOL [Concomitant]
  10. VESICARE [Concomitant]
     Dosage: UNK
  11. HYZAAR [Concomitant]
     Dosage: UNK
  12. MIRAPEX [Concomitant]
     Dosage: UNK
  13. NAPROXEN [Concomitant]
     Dosage: UNK
  14. SIMVASTATIN [Concomitant]
     Dosage: UNK

REACTIONS (4)
  - DEPRESSION [None]
  - FEELING ABNORMAL [None]
  - EXPIRED DRUG ADMINISTERED [None]
  - CONFUSIONAL STATE [None]
